FAERS Safety Report 8888342 (Version 3)
Quarter: 2014Q2

REPORT INFORMATION
  Report Type: Spontaneous
  Country: JP (occurrence: JP)
  Receive Date: 20121106
  Receipt Date: 20131018
  Transmission Date: 20141212
  Serious: Yes (Hospitalization, Other)
  Sender: FDA-Public Use
  Company Number: JP-PFIZER INC-2012270924

PATIENT
  Age: 30 Year
  Sex: Male

DRUGS (1)
  1. SOLU-CORTEF [Suspect]
     Dosage: UNK
     Dates: end: 201210

REACTIONS (2)
  - Infection susceptibility increased [Recovered/Resolved]
  - Pyrexia [Recovered/Resolved]
